FAERS Safety Report 14917952 (Version 2)
Quarter: 2024Q4

REPORT INFORMATION
  Report Type: Spontaneous
  Country: US (occurrence: US)
  Receive Date: 20180521
  Receipt Date: 20241115
  Transmission Date: 20250115
  Serious: Yes (Hospitalization, Other)
  Sender: AUROBINDO
  Company Number: US-AUROBINDO-AUR-APL-2018-025930

PATIENT
  Age: 76 Year
  Sex: Male

DRUGS (1)
  1. CAPECITABINE [Suspect]
     Active Substance: CAPECITABINE
     Indication: Breast cancer metastatic
     Dosage: UNK, CYCLICAL
     Route: 065

REACTIONS (14)
  - Atrial fibrillation [Not Recovered/Not Resolved]
  - Bundle branch block left [Not Recovered/Not Resolved]
  - Cardiomyopathy [Not Recovered/Not Resolved]
  - Cardiotoxicity [Not Recovered/Not Resolved]
  - Mitral valve incompetence [Not Recovered/Not Resolved]
  - Left ventricular dysfunction [Not Recovered/Not Resolved]
  - Pulmonary congestion [Unknown]
  - Cardiac failure [Unknown]
  - Fatigue [Unknown]
  - Oedema peripheral [Unknown]
  - Livedo reticularis [Unknown]
  - Vasodilatation [Unknown]
  - Ejection fraction [Recovering/Resolving]
  - Dyspnoea exertional [Recovered/Resolved]
